FAERS Safety Report 5285627-X (Version None)
Quarter: 2007Q1

REPORT INFORMATION
  Report Type: 
  Country: None (occurrence: None)
  Receive Date: 20070116
  Receipt Date: 20061130
  Transmission Date: 20070707
  Serious: No
  Sender: FDA-Public Use
  Company Number: 2006SP004213

PATIENT
  Age: 83 Year
  Sex: Female
  Weight: 58.514 kg

DRUGS (8)
  1. LUNESTA [Suspect]
     Indication: INSOMNIA
     Dosage: 2 MG;ORAL
     Route: 048
     Dates: start: 20061129
  2. ATENOLOL [Concomitant]
  3. TRIAMTERENE [Concomitant]
  4. NEXIUM [Concomitant]
  5. ENALAPRIL MALEATE [Concomitant]
  6. ATORVASTATIN CALCIUM [Concomitant]
  7. ZETIA [Concomitant]
  8. PAXIL [Concomitant]

REACTIONS (1)
  - INSOMNIA [None]
